FAERS Safety Report 8796404 (Version 2)
Quarter: 2012Q4

REPORT INFORMATION
  Report Type: 
  Country: GB (occurrence: GB)
  Receive Date: 20120919
  Receipt Date: 20120928
  Transmission Date: 20130627
  Serious: Yes (Disabling)
  Sender: FDA-Public Use
  Company Number: GB-ARROW-2012-14449

PATIENT
  Sex: Female
  Weight: 63 kg

DRUGS (3)
  1. TOPIRAMATE [Suspect]
     Indication: HEADACHE
     Dosage: 50 mg, bid
     Route: 048
     Dates: start: 20091130, end: 20120904
  2. TOPIRAMATE [Suspect]
     Indication: MIGRAINE
  3. TOPIRAMATO RANBAXY [Suspect]
     Indication: MIGRAINE
     Dosage: variable
     Route: 065

REACTIONS (4)
  - Pain in extremity [Not Recovered/Not Resolved]
  - Sensation of heaviness [Unknown]
  - Asthenia [Recovered/Resolved]
  - Myalgia [Not Recovered/Not Resolved]
